FAERS Safety Report 13334327 (Version 1)
Quarter: 2017Q1

REPORT INFORMATION
  Report Type: Spontaneous
  Country: FR (occurrence: FR)
  Receive Date: 20170314
  Receipt Date: 20170314
  Transmission Date: 20170428
  Serious: Yes (Hospitalization)
  Sender: FDA-Public Use
  Company Number: FR-SA-2017SA040111

PATIENT
  Age: 82 Year
  Sex: Male

DRUGS (12)
  1. PLAVIX [Concomitant]
     Active Substance: CLOPIDOGREL BISULFATE
     Dates: start: 201701
  2. TAHOR [Concomitant]
     Active Substance: ATORVASTATIN CALCIUM
  3. GLUCOSE [Concomitant]
     Active Substance: DEXTROSE
     Dosage: 5% 1L / 24 HOURS
  4. TRAMADOL. [Concomitant]
     Active Substance: TRAMADOL
     Dosage: 50 MGX 4 / DAY
  5. BISOCE [Concomitant]
     Active Substance: BISOPROLOL
     Dosage: 5 MG 1 IN THE MORNING AND 1/2 IN THE EVENING
  6. MORPHINE [Concomitant]
     Active Substance: MORPHINE
     Dosage: 10 MGX4 / DAY IF VISUAL ANALOG EVALUATION HAD BEEN GREATER THAN 3, FR HAD BEEN GREATER THAN 8
     Route: 058
  7. CALCIPARINE [Suspect]
     Active Substance: HEPARIN CALCIUM
     Dosage: DAILY DOSE : 1) (0.2 ML, 2 DAY(S))
     Route: 058
     Dates: start: 20170104, end: 20170105
  8. LOVENOX [Suspect]
     Active Substance: ENOXAPARIN SODIUM
     Route: 058
     Dates: start: 20170103, end: 20170103
  9. KARDEGIC [Concomitant]
     Active Substance: ASPIRIN LYSINE
     Dates: start: 201701
  10. ZOPHREN [Concomitant]
     Active Substance: ONDANSETRON
     Dosage: 3/DAY
  11. PERFALGAN [Concomitant]
     Active Substance: ACETAMINOPHEN
     Dosage: 1G X3 / DAY
  12. PANTOPRAZOLE [Suspect]
     Active Substance: PANTOPRAZOLE SODIUM
     Route: 048
     Dates: start: 20170103, end: 20170105

REACTIONS (1)
  - Toxic skin eruption [Recovered/Resolved]

NARRATIVE: CASE EVENT DATE: 20170105
